FAERS Safety Report 26053911 (Version 1)
Quarter: 2025Q4

REPORT INFORMATION
  Report Type: Spontaneous
  Country: US (occurrence: US)
  Receive Date: 20251117
  Receipt Date: 20251117
  Transmission Date: 20260118
  Serious: No
  Sender: SANOFI AVENTIS
  Company Number: US-SA-2025SA341237

PATIENT
  Age: 39 Year
  Sex: Female
  Weight: 48.18 kg

DRUGS (7)
  1. DUPIXENT [Suspect]
     Active Substance: DUPILUMAB
     Indication: Eosinophilic oesophagitis
     Dosage: 300.000MG QW
     Route: 058
  2. MINERALS\VITAMINS [Concomitant]
     Active Substance: MINERALS\VITAMINS
  3. VYVANSE [Concomitant]
     Active Substance: LISDEXAMFETAMINE DIMESYLATE
  4. LYRICA [Concomitant]
     Active Substance: PREGABALIN
  5. PROTONIX [Concomitant]
     Active Substance: PANTOPRAZOLE SODIUM
  6. LINZESS [Concomitant]
     Active Substance: LINACLOTIDE
  7. DULOXETINE HYDROCHLORIDE [Concomitant]
     Active Substance: DULOXETINE HYDROCHLORIDE

REACTIONS (4)
  - Spinal pain [Recovering/Resolving]
  - Condition aggravated [Recovering/Resolving]
  - Nervous system disorder [Unknown]
  - Arthralgia [Recovering/Resolving]
